FAERS Safety Report 18252535 (Version 1)
Quarter: 2020Q3

REPORT INFORMATION
  Report Type: Spontaneous
  Country: US (occurrence: US)
  Receive Date: 20200910
  Receipt Date: 20200910
  Transmission Date: 20201103
  Serious: No
  Sender: FDA-Public Use
  Company Number: US-GLENMARK PHARMACEUTICALS-2020GMK046443

PATIENT

DRUGS (2)
  1. LIDOCAINE OINTMENT USP 5% [Suspect]
     Active Substance: LIDOCAINE
     Indication: PENILE PAIN
  2. LIDOCAINE OINTMENT USP 5% [Suspect]
     Active Substance: LIDOCAINE
     Indication: PENILE WART
     Dosage: UNK, BID
     Route: 065
     Dates: start: 20200227

REACTIONS (6)
  - Pain [Unknown]
  - Application site inflammation [Unknown]
  - Application site haemorrhage [Unknown]
  - Application site laceration [Not Recovered/Not Resolved]
  - Application site erythema [Unknown]
  - Product use in unapproved indication [Unknown]

NARRATIVE: CASE EVENT DATE: 202002
